FAERS Safety Report 8614284-7 (Version None)
Quarter: 2012Q3

REPORT INFORMATION
  Report Type: 
  Country: None (occurrence: None)
  Receive Date: 20120813
  Receipt Date: 20120813
  Transmission Date: 20120928
  Serious: Yes (Hospitalization)
  Sender: FDA-Public Use
  Company Number: None

PATIENT
  Age: 58 Year
  Sex: Male
  Weight: 102.7 kg

DRUGS (1)
  1. CLINDAMYCIN [Suspect]
     Indication: PNEUMONIA STAPHYLOCOCCAL
     Dosage: 450 MG TID PO
     Route: 048
     Dates: start: 20120518, end: 20120519

REACTIONS (6)
  - URTICARIA [None]
  - WHITE BLOOD CELL COUNT INCREASED [None]
  - BLOOD CREATININE INCREASED [None]
  - HYPOTENSION [None]
  - PYREXIA [None]
  - SWELLING [None]
